FAERS Safety Report 18202854 (Version 2)
Quarter: 2020Q3

REPORT INFORMATION
  Report Type: Spontaneous
  Country: MY (occurrence: MY)
  Receive Date: 20200827
  Receipt Date: 20200901
  Transmission Date: 20201103
  Serious: Yes (Life-Threatening, Hospitalization)
  Sender: FDA-Public Use
  Company Number: MY-MYLANLABS-2020M1074152

PATIENT
  Age: 50 Year
  Sex: Female
  Weight: 60 kg

DRUGS (6)
  1. EPILIM [Concomitant]
     Active Substance: VALPROATE SODIUM
     Dosage: 400 MILLIGRAM, BID
     Route: 048
     Dates: start: 2014
  2. ARTANE [Suspect]
     Active Substance: TRIHEXYPHENIDYL HYDROCHLORIDE
     Indication: EXTRAPYRAMIDAL DISORDER
     Dosage: 2 MG BD
     Route: 048
     Dates: start: 2014, end: 20200821
  3. OLANZAPINE. [Concomitant]
     Active Substance: OLANZAPINE
     Indication: SCHIZOPHRENIA
     Dosage: 5 MILLIGRAM, PM (5MG ON)
     Route: 048
     Dates: start: 20110324
  4. CLOZARIL [Suspect]
     Active Substance: CLOZAPINE
     Indication: SCHIZOPHRENIA
     Dosage: 125 MILLIGRAM, BID (125MG BD)
     Route: 048
     Dates: start: 20110321, end: 20200711
  5. CLOZARIL [Suspect]
     Active Substance: CLOZAPINE
     Dosage: 125MG OM, 150MG ON (BID)
     Route: 048
     Dates: start: 20200712, end: 20200821
  6. MODECATE [Concomitant]
     Active Substance: FLUPHENAZINE DECANOATE
     Indication: SCHIZOPHRENIA
     Dosage: 50 MILLIGRAM, Q2W
     Route: 030
     Dates: start: 2011

REACTIONS (9)
  - Hypotension [Recovering/Resolving]
  - Septic shock [Recovering/Resolving]
  - Abdominal tenderness [Recovering/Resolving]
  - Tachycardia [Recovering/Resolving]
  - Bradycardia [Recovering/Resolving]
  - Colitis ulcerative [Recovering/Resolving]
  - Constipation [Recovering/Resolving]
  - Ileus paralytic [Recovering/Resolving]
  - White blood cell count increased [Recovering/Resolving]

NARRATIVE: CASE EVENT DATE: 20200814
